FAERS Safety Report 16972612 (Version 2)
Quarter: 2019Q4

REPORT INFORMATION
  Report Type: Report from Study
  Country: JP (occurrence: JP)
  Receive Date: 20191030
  Receipt Date: 20191119
  Transmission Date: 20200122
  Serious: Yes (Other)
  Sender: FDA-Public Use
  Company Number: JP-TAKEDA-2019TJP025253

PATIENT

DRUGS (9)
  1. ALOGLIPTIN. [Suspect]
     Active Substance: ALOGLIPTIN
     Indication: TYPE 2 DIABETES MELLITUS
     Dosage: UNK
     Route: 048
  2. TENELIGLIPTIN HYDROBROMIDE [Suspect]
     Active Substance: TENELIGLIPTIN HYDROBROMIDE ANHYDROUS
     Indication: TYPE 2 DIABETES MELLITUS
     Dosage: UNK
     Route: 048
  3. ZAFATEK TABLETS 100 MG [Suspect]
     Active Substance: TRELAGLIPTIN SUCCINATE
     Indication: TYPE 2 DIABETES MELLITUS
     Dosage: UNK
     Route: 048
  4. LINAGLIPTIN [Suspect]
     Active Substance: LINAGLIPTIN
     Indication: TYPE 2 DIABETES MELLITUS
     Dosage: UNK
     Route: 048
  5. SAXAGLIPTIN MONOHYDRATE [Suspect]
     Active Substance: SAXAGLIPTIN MONOHYDRATE
     Indication: TYPE 2 DIABETES MELLITUS
     Dosage: UNK
     Route: 048
  6. SUREPOST [Suspect]
     Active Substance: REPAGLINIDE
     Indication: TYPE 2 DIABETES MELLITUS
     Dosage: UNK
     Route: 048
  7. SITAGLIPTIN PHOSPHATE MONOHYDRATE [Suspect]
     Active Substance: SITAGLIPTIN PHOSPHATE
     Indication: TYPE 2 DIABETES MELLITUS
     Dosage: UNK
     Route: 048
  8. VILDAGLIPTIN [Suspect]
     Active Substance: VILDAGLIPTIN
     Indication: TYPE 2 DIABETES MELLITUS
     Dosage: UNK
     Route: 048
  9. ANAGLIPTIN [Suspect]
     Active Substance: ANAGLIPTIN
     Indication: TYPE 2 DIABETES MELLITUS
     Dosage: UNK
     Route: 048

REACTIONS (22)
  - Vertigo [Unknown]
  - Dizziness [Unknown]
  - Colon cancer [Unknown]
  - Hypertriglyceridaemia [Unknown]
  - Discomfort [Unknown]
  - Dizziness postural [Unknown]
  - Anaemia [Unknown]
  - Rash [Unknown]
  - Diabetes mellitus inadequate control [Unknown]
  - Headache [Unknown]
  - Palpitations [Unknown]
  - Hepatic function abnormal [Unknown]
  - Hypoglycaemia [Unknown]
  - Hepatic function abnormal [Recovered/Resolved]
  - Feeling abnormal [Unknown]
  - Eczema [Unknown]
  - Facial paralysis [Unknown]
  - Hypoglycaemia [Recovered/Resolved]
  - Tremor [Unknown]
  - Dyslipidaemia [Unknown]
  - Diarrhoea [Unknown]
  - Weight increased [Unknown]
